FAERS Safety Report 4421024-4 (Version None)
Quarter: 2004Q3

REPORT INFORMATION
  Report Type: 
  Country: None (occurrence: None)
  Receive Date: 20040803
  Receipt Date: 20040430
  Transmission Date: 20050211
  Serious: No
  Sender: FDA-Public Use
  Company Number: 2004029583

PATIENT
  Age: 40 Year
  Sex: Female
  Weight: 72.5755 kg

DRUGS (2)
  1. BENADRYL [Suspect]
     Indication: HOT FLUSH
     Dosage: 1 TAB ONCE THEN 2 TABLETS Q4H, ORAL
     Route: 048
     Dates: start: 20040429, end: 20040430
  2. DIAZEPAM [Suspect]
     Dosage: 5 MG ONCE, ORAL
     Route: 048
     Dates: start: 20040429, end: 20040429

REACTIONS (12)
  - BLISTER [None]
  - CONTRAST MEDIA REACTION [None]
  - ERYTHEMA [None]
  - EYE SWELLING [None]
  - FEELING HOT [None]
  - GENERALISED OEDEMA [None]
  - HOT FLUSH [None]
  - JOINT SWELLING [None]
  - POST PROCEDURAL COMPLICATION [None]
  - PRURITUS [None]
  - SWELLING FACE [None]
  - URTICARIA [None]
